FAERS Safety Report 20705224 (Version 1)
Quarter: 2022Q2

REPORT INFORMATION
  Report Type: Spontaneous
  Country: US (occurrence: US)
  Receive Date: 20220413
  Receipt Date: 20220413
  Transmission Date: 20220721
  Serious: Yes (Hospitalization)
  Sender: FDA-Public Use
  Company Number: US-PFIZER INC-2021502220

PATIENT
  Age: 24 Year
  Sex: Female

DRUGS (3)
  1. BUPIVACAINE HYDROCHLORIDE [Suspect]
     Active Substance: BUPIVACAINE HYDROCHLORIDE
     Indication: Analgesic therapy
     Dosage: RATE OF 12 ML/H AND A BOLUS OF 4 ML WITH A 15 MIN LOCKOUT INTERVAL
  2. FENTANYL CITRATE [Suspect]
     Active Substance: FENTANYL CITRATE
     Indication: Analgesic therapy
     Dosage: RATE OF 12 ML/H AND A BOLUS OF 4 ML WITH A 15 MIN LOCKOUT INTERVAL
  3. MAGNESIUM SULFATE [Concomitant]
     Active Substance: MAGNESIUM SULFATE
     Indication: Seizure prophylaxis
     Dosage: UNK

REACTIONS (1)
  - Procedural headache [Recovered/Resolved]
